FAERS Safety Report 11506774 (Version 1)
Quarter: 2015Q3

REPORT INFORMATION
  Report Type: Spontaneous
  Country: US (occurrence: None)
  Receive Date: 20150914
  Receipt Date: 20150914
  Transmission Date: 20151125
  Serious: Yes (Hospitalization)
  Sender: FDA-Public Use
  Company Number: None

PATIENT
  Age: 27 Year
  Sex: Female

DRUGS (1)
  1. ZYTIGA [Suspect]
     Active Substance: ABIRATERONE ACETATE
     Indication: COLON CANCER
     Route: 048
     Dates: start: 20150812

REACTIONS (3)
  - Palmar-plantar erythrodysaesthesia syndrome [None]
  - Pyrexia [None]
  - Disease progression [None]

NARRATIVE: CASE EVENT DATE: 20150818
